FAERS Safety Report 9305996 (Version 1)
Quarter: 2013Q2

REPORT INFORMATION
  Report Type: Spontaneous
  Country: US (occurrence: None)
  Receive Date: 20130520
  Receipt Date: 20130520
  Transmission Date: 20140414
  Serious: Yes (Death, Hospitalization, Other)
  Sender: FDA-Public Use
  Company Number: AUR-APL-2013-04093

PATIENT
  Age: 16 Year
  Sex: Male
  Weight: 68.49 kg

DRUGS (2)
  1. AMOXICILLIN (AMOXICILLIN) [Suspect]
     Indication: TOOTH INFECTION
  2. LORTAB (VICODIN) [Concomitant]
     Indication: PAIN

REACTIONS (12)
  - Cough [None]
  - Oropharyngeal pain [None]
  - Rash [None]
  - Dyspnoea [None]
  - Malaise [None]
  - Resuscitation [None]
  - Pulmonary oedema [None]
  - Hepatomegaly [None]
  - Splenomegaly [None]
  - Cardiomegaly [None]
  - Stenotrophomonas test positive [None]
  - Culture positive [None]
